FAERS Safety Report 7937139-X (Version None)
Quarter: 2011Q4

REPORT INFORMATION
  Report Type: 
  Country: None (occurrence: None)
  Receive Date: 20111123
  Receipt Date: 20111114
  Transmission Date: 20120403
  Serious: Yes (Hospitalization)
  Sender: FDA-Public Use
  Company Number: US-BAYER-2011-080240

PATIENT
  Age: 32 Year
  Sex: Female
  Weight: 80.726 kg

DRUGS (2)
  1. DROSPIRENONE AND ETHINYL ESTRADIOL [Suspect]
     Indication: CONTRACEPTION
     Dosage: UNK
     Dates: start: 20081201, end: 20090601
  2. YAZ [Suspect]
     Dosage: UNK
     Dates: start: 20050101, end: 20060101

REACTIONS (5)
  - PAIN IN EXTREMITY [None]
  - INJURY [None]
  - THROMBOSIS [None]
  - PULMONARY EMBOLISM [None]
  - DEEP VEIN THROMBOSIS [None]
